FAERS Safety Report 9816852 (Version 1)
Quarter: 2014Q1

REPORT INFORMATION
  Report Type: Spontaneous
  Country: US (occurrence: US)
  Receive Date: 20140114
  Receipt Date: 20140114
  Transmission Date: 20141002
  Serious: Yes (Death)
  Sender: FDA-Public Use
  Company Number: US-PFIZER INC-2014008240

PATIENT
  Age: 44 Year
  Sex: Male

DRUGS (5)
  1. MORPHINE SULFATE [Suspect]
     Route: 048
  2. VENLAFAXINE HCL [Suspect]
     Route: 048
  3. GABAPENTIN [Suspect]
     Route: 048
  4. NORTRIPTYLINE [Suspect]
     Route: 048
  5. ACETAMINOPHEN W/HYDROCODONE BITARTRATE [Suspect]
     Route: 048

REACTIONS (1)
  - Completed suicide [Fatal]
